FAERS Safety Report 24185662 (Version 1)
Quarter: 2024Q3

REPORT INFORMATION
  Report Type: Spontaneous
  Country: US (occurrence: US)
  Receive Date: 20240807
  Receipt Date: 20240807
  Transmission Date: 20241017
  Serious: Yes (Hospitalization)
  Sender: ACORDA
  Company Number: US-ACORDA-ACO_177676_2024

PATIENT
  Sex: Female

DRUGS (1)
  1. INBRIJA [Suspect]
     Active Substance: LEVODOPA
     Indication: Parkinson^s disease
     Dosage: 84 MILLIGRAM, PRN
     Route: 065
     Dates: start: 2023

REACTIONS (6)
  - Cardiac disorder [Unknown]
  - COVID-19 [Unknown]
  - Sinus congestion [Unknown]
  - Pneumonia [Unknown]
  - Cough [Unknown]
  - Sputum discoloured [Unknown]
